FAERS Safety Report 5563655-4 (Version None)
Quarter: 2007Q4

REPORT INFORMATION
  Report Type: 
  Country: None (occurrence: None)
  Receive Date: 20071217
  Receipt Date: 20070731
  Transmission Date: 20080405
  Serious: Yes (Other)
  Sender: FDA-Public Use
  Company Number: US-ASTRAZENECA-2007UW18386

PATIENT
  Age: 61 Year
  Sex: Male

DRUGS (14)
  1. CRESTOR [Suspect]
     Route: 048
     Dates: start: 20070718
  2. CONTROL PLP (NICOTINE PATCH) [Suspect]
     Indication: SMOKING CESSATION THERAPY
     Route: 062
     Dates: start: 20070718
  3. CLAVULANATE POTASSIUM [Concomitant]
  4. FUROSEMIDE [Concomitant]
  5. HYDROZIDE [Concomitant]
  6. LISINOPRIL [Concomitant]
  7. OLANZAPINE [Concomitant]
  8. OMEPRAZOLE SODIUM [Concomitant]
  9. ZETIA [Concomitant]
  10. TRAMADOL HCL [Concomitant]
  11. ACTONEL [Concomitant]
  12. NEURONTIN [Concomitant]
  13. PREDNISONE [Concomitant]
  14. AUGMENTIN '250' [Concomitant]

REACTIONS (1)
  - BLOOD GLUCOSE INCREASED [None]
